FAERS Safety Report 23022195 (Version 9)
Quarter: 2025Q3

REPORT INFORMATION
  Report Type: Report from Study
  Country: US (occurrence: US)
  Receive Date: 20231003
  Receipt Date: 20250707
  Transmission Date: 20251020
  Serious: Yes (Hospitalization)
  Sender: JOHNSON AND JOHNSON
  Company Number: US-009507513-2309USA002369

PATIENT
  Age: 85 Year
  Sex: Male
  Weight: 112.5 kg

DRUGS (9)
  1. XARELTO [Suspect]
     Active Substance: RIVAROXABAN
     Indication: Atrial fibrillation
     Dosage: 20 MG, QD
     Route: 048
     Dates: start: 20150627, end: 20230727
  2. XARELTO [Suspect]
     Active Substance: RIVAROXABAN
     Dosage: 20 MG, QD
     Route: 048
     Dates: start: 20230810
  3. FARXIGA [Concomitant]
     Active Substance: DAPAGLIFLOZIN PROPANEDIOL
     Indication: Cardiac failure
     Dosage: DOSE DESCRIPTION : [2] 10 MG DAILY, FREQ: QDDAILY DOSE : 10 MILLIGRAM CONCENTRATION: 10 MILLIGRAM
     Route: 048
     Dates: start: 20210929
  4. FUROSEMIDE [Concomitant]
     Active Substance: FUROSEMIDE
     Indication: Cardiac failure
     Dosage: DOSE DESCRIPTION : [3] 40 MG DAILY, FREQ: QDDAILY DOSE : 40 MILLIGRAM CONCENTRATION: 40 MILLIGRAM
     Route: 048
     Dates: start: 20191016
  5. METOPROLOL SUCCINATE [Concomitant]
     Active Substance: METOPROLOL SUCCINATE
     Indication: Cardiac failure
     Dosage: DOSE DESCRIPTION : [4] 200 MG DAILY, FREQ: QDDAILY DOSE : 200 MILLIGRAM CONCENTRATION: 200 MILLIGRAM
     Route: 048
     Dates: start: 20150627
  6. ENTRESTO [Concomitant]
     Active Substance: SACUBITRIL\VALSARTAN
     Indication: Cardiac failure
     Dosage: 50 MG, BID
     Route: 048
     Dates: start: 20191016
  7. ENTRESTO [Concomitant]
     Active Substance: SACUBITRIL\VALSARTAN
     Route: 048
     Dates: start: 20191016
  8. SPIRONOLACTONE [Concomitant]
     Active Substance: SPIRONOLACTONE
     Indication: Cardiac failure
     Dosage: DOSE DESCRIPTION : [7] 25 MG DAILY, FREQ: QDDAILY DOSE : 25 MILLIGRAM CONCENTRATION: 25 MILLIGRAM
     Route: 048
     Dates: start: 20191119
  9. ATORVASTATIN [Concomitant]
     Active Substance: ATORVASTATIN
     Indication: Hyperlipidaemia
     Dosage: DOSE DESCRIPTION : [5] 80 MG DAILY, FREQ: QDDAILY DOSE : 80 MILLIGRAM CONCENTRATION: 80 MILLIGRAM RE
     Route: 048
     Dates: start: 20150421, end: 20230728

REACTIONS (2)
  - Anaemia [Recovered/Resolved]
  - Duodenal ulcer [Recovered/Resolved]

NARRATIVE: CASE EVENT DATE: 20230726
